FAERS Safety Report 8322550-8 (Version None)
Quarter: 2012Q2

REPORT INFORMATION
  Report Type: 
  Country: None (occurrence: None)
  Receive Date: 20120430
  Receipt Date: 20100209
  Transmission Date: 20120825
  Serious: No
  Sender: FDA-Public Use
  Company Number: US-TEVA-2010000811

PATIENT
  Sex: Female

DRUGS (8)
  1. NUVIGIL [Suspect]
     Indication: DEMENTIA
  2. PROVIGIL [Suspect]
     Indication: DEMENTIA
  3. ASPIRIN [Concomitant]
     Dosage: 81 MILLIGRAM;
     Route: 048
     Dates: start: 20020101
  4. NUVIGIL [Suspect]
     Indication: SOMNOLENCE
     Route: 048
     Dates: start: 20100125, end: 20100208
  5. PROVIGIL [Suspect]
     Indication: SOMNOLENCE
     Route: 048
     Dates: end: 20100101
  6. NAMENDA [Concomitant]
     Indication: DEMENTIA
     Route: 048
     Dates: start: 20030101
  7. ARICEPT [Concomitant]
     Indication: DEMENTIA
     Route: 048
     Dates: start: 20030101
  8. FLUOXETINE [Concomitant]
     Indication: DEPRESSION
     Route: 048
     Dates: start: 20050101

REACTIONS (3)
  - GENERAL PHYSICAL HEALTH DETERIORATION [None]
  - AFFECT LABILITY [None]
  - SENSORIMOTOR DISORDER [None]
